FAERS Safety Report 17814893 (Version 2)
Quarter: 2020Q2

REPORT INFORMATION
  Report Type: Spontaneous
  Country: HR (occurrence: HR)
  Receive Date: 20200522
  Receipt Date: 20200527
  Transmission Date: 20200714
  Serious: Yes (Other)
  Sender: FDA-Public Use
  Company Number: HR-US-PROVELL PHARMACEUTICALS LLC-9164084

PATIENT
  Age: 73 Year
  Sex: Female

DRUGS (5)
  1. ORMIDOL [Concomitant]
     Active Substance: ATENOLOL
     Indication: CARDIAC DISORDER
  2. EUTHYROX [Suspect]
     Active Substance: LEVOTHYROXINE SODIUM
     Dosage: EUTHYROX NEW FORMULATION
     Route: 048
     Dates: start: 202002
  3. EUTHYROX [Suspect]
     Active Substance: LEVOTHYROXINE SODIUM
     Dosage: EUTHYROX OLD FORMULATION
  4. EUTHYROX [Suspect]
     Active Substance: LEVOTHYROXINE SODIUM
     Dosage: EUTHYROX OLD FORMULATION
     Route: 048
     Dates: start: 202002, end: 202002
  5. EUTHYROX [Suspect]
     Active Substance: LEVOTHYROXINE SODIUM
     Indication: AUTOIMMUNE THYROIDITIS
     Dosage: EUTHYROX OLD FORMULATION
     Dates: start: 1995

REACTIONS (4)
  - Hyperhidrosis [Not Recovered/Not Resolved]
  - Lung neoplasm malignant [Unknown]
  - Blood thyroid stimulating hormone abnormal [Unknown]
  - Stress [Unknown]

NARRATIVE: CASE EVENT DATE: 201909
